FAERS Safety Report 19008437 (Version 1)
Quarter: 2021Q1

REPORT INFORMATION
  Report Type: Spontaneous
  Country: US (occurrence: US)
  Receive Date: 20210316
  Receipt Date: 20210316
  Transmission Date: 20210420
  Serious: No
  Sender: FDA-Public Use
  Company Number: US-STRONGBRIDGE BIOPHARMA-2021-STR-000065

PATIENT
  Age: 48 Year
  Sex: Male

DRUGS (2)
  1. KEVEYIS [Suspect]
     Active Substance: DICHLORPHENAMIDE
     Indication: FAMILIAL PERIODIC PARALYSIS
     Dosage: 50 MG, BID
     Route: 048
  2. IBUPROFEN. [Concomitant]
     Active Substance: IBUPROFEN
     Dosage: 1200 MG, QD

REACTIONS (6)
  - Influenza like illness [Unknown]
  - Wheezing [Unknown]
  - Hyperhidrosis [Unknown]
  - Speech disorder [Unknown]
  - Pyrexia [Unknown]
  - Muscle disorder [Unknown]

NARRATIVE: CASE EVENT DATE: 20210221
